FAERS Safety Report 13926309 (Version 2)
Quarter: 2017Q3

REPORT INFORMATION
  Report Type: Spontaneous
  Country: US (occurrence: US)
  Receive Date: 20170831
  Receipt Date: 20170911
  Transmission Date: 20171127
  Serious: Yes (Hospitalization, Other)
  Sender: FDA-Public Use
  Company Number: US-ALLERGAN-1748408US

PATIENT
  Age: 63 Year
  Sex: Female

DRUGS (5)
  1. PROMETHAZINE-DEXTROMETHORPHAN [Interacting]
     Active Substance: DEXTROMETHORPHAN\PROMETHAZINE
     Indication: COUGH
     Route: 065
  2. LABETALOL [Concomitant]
     Active Substance: LABETALOL\LABETALOL HYDROCHLORIDE
  3. PROMETHAZINE-DEXTROMETHORPHAN [Interacting]
     Active Substance: DEXTROMETHORPHAN\PROMETHAZINE
     Indication: UPPER RESPIRATORY TRACT INFECTION
  4. AMLOPDIPINE [Concomitant]
     Route: 065
  5. ESCITALOPRAM OXALATE - BP [Suspect]
     Active Substance: ESCITALOPRAM OXALATE
     Indication: DEPRESSION
     Dosage: 10 MG, UNK
     Route: 065

REACTIONS (3)
  - Drug interaction [Recovered/Resolved]
  - Serotonin syndrome [Recovered/Resolved]
  - Electrocardiogram QT prolonged [Recovered/Resolved]
